FAERS Safety Report 6329523-5 (Version None)
Quarter: 2009Q3

REPORT INFORMATION
  Report Type: 
  Country: None (occurrence: None)
  Receive Date: 20090825
  Receipt Date: 20090825
  Transmission Date: 20100115
  Serious: No
  Sender: FDA-Public Use
  Company Number: None

PATIENT
  Age: 69 Year
  Sex: Female
  Weight: 57.1532 kg

DRUGS (2)
  1. RECLAST [Suspect]
     Indication: OSTEOPENIA
     Dosage: 1 VIAL
     Dates: start: 20080122, end: 20081231
  2. RECLAST [Suspect]
     Indication: OSTEOPENIA
     Dosage: 1 VIAL
     Dates: start: 20090122, end: 20090824

REACTIONS (4)
  - ACTIVITIES OF DAILY LIVING IMPAIRED [None]
  - ARTHRALGIA [None]
  - GAIT DISTURBANCE [None]
  - INFLAMMATION [None]
